FAERS Safety Report 25106745 (Version 1)
Quarter: 2025Q1

REPORT INFORMATION
  Report Type: Spontaneous
  Country: US (occurrence: US)
  Receive Date: 20250321
  Receipt Date: 20250321
  Transmission Date: 20250408
  Serious: Yes (Other)
  Sender: GLAXOSMITHKLINE
  Company Number: SG-GSKCCFAPAC-a04cz0000079RbGAAU

PATIENT

DRUGS (2)
  1. VALTREX [Suspect]
     Active Substance: VALACYCLOVIR HYDROCHLORIDE
     Indication: Herpes zoster
     Dosage: 1 G, QD
  2. VALTREX [Suspect]
     Active Substance: VALACYCLOVIR HYDROCHLORIDE
     Dosage: 3 G, QD , WHEN IN OUTBREAK

REACTIONS (3)
  - Impaired gastric emptying [Unknown]
  - Herpes zoster [Not Recovered/Not Resolved]
  - Inappropriate schedule of product administration [Unknown]
